FAERS Safety Report 8307009-6 (Version None)
Quarter: 2012Q2

REPORT INFORMATION
  Report Type: 
  Country: None (occurrence: None)
  Receive Date: 20120424
  Receipt Date: 20120417
  Transmission Date: 20120825
  Serious: No
  Sender: FDA-Public Use
  Company Number: PHHY2012VE026356

PATIENT
  Sex: Male

DRUGS (3)
  1. AMARYL [Concomitant]
     Indication: DIABETES MELLITUS
     Dosage: 4 MG, QD
     Route: 048
  2. TASIGNA [Suspect]
     Dosage: 400 MG, BID
     Dates: start: 20120416
  3. TASIGNA [Suspect]
     Indication: CHRONIC MYELOID LEUKAEMIA
     Dosage: 400 MG, BID
     Route: 048
     Dates: start: 20120316, end: 20120324

REACTIONS (4)
  - PALPITATIONS [None]
  - RASH [None]
  - PAIN [None]
  - FLUSHING [None]
